FAERS Safety Report 7519142-7 (Version None)
Quarter: 2011Q2

REPORT INFORMATION
  Report Type: 
  Country: None (occurrence: None)
  Receive Date: 20110602
  Receipt Date: 20110531
  Transmission Date: 20111010
  Serious: Yes (Hospitalization)
  Sender: FDA-Public Use
  Company Number: FR-ROCHE-748831

PATIENT
  Sex: Male
  Weight: 8 kg

DRUGS (10)
  1. MIDAZOLAM HYDROCHLORIDE [Suspect]
     Indication: AGITATION
     Dosage: FREQUENCY: FROM 3:00 PM TO 8:00 PM
     Route: 042
     Dates: start: 20101027, end: 20101027
  2. VALPROATE SODIUM [Concomitant]
     Dates: start: 20101028, end: 20101028
  3. PHENOBARBITAL TAB [Suspect]
     Dosage: LOADING DOSE: 20 MG/KG (160 MG), MAINTENANCE DOSE: 5 MG/KG (40 MG)
     Route: 042
     Dates: start: 20101027, end: 20101027
  4. MANNITOL [Concomitant]
  5. DEPAKENE [Concomitant]
  6. VALIUM [Concomitant]
     Dosage: ROUTE: INTRA-RECTAL, FREQUENCY: ONCE
     Route: 037
     Dates: start: 20101027, end: 20101027
  7. SUFENTA PRESERVATIVE FREE [Suspect]
     Route: 042
     Dates: start: 20101027
  8. ACETAMINOPHEN [Concomitant]
     Route: 042
     Dates: start: 20101026
  9. DIPRIVAN [Suspect]
     Route: 042
     Dates: start: 20101026
  10. KEPPRA [Concomitant]
     Dosage: 160 MG TWICE A DAY

REACTIONS (1)
  - CYTOLYTIC HEPATITIS [None]
